FAERS Safety Report 5574026-9 (Version None)
Quarter: 2007Q4

REPORT INFORMATION
  Report Type: 
  Country: None (occurrence: None)
  Receive Date: 20071221
  Receipt Date: 20071211
  Transmission Date: 20080405
  Serious: Yes (Hospitalization)
  Sender: FDA-Public Use
  Company Number: 2007BI026125

PATIENT
  Age: 53 Year
  Sex: Female

DRUGS (7)
  1. AVONEX [Suspect]
     Indication: MULTIPLE SCLEROSIS
     Dosage: 30 UG;QW; IM
     Route: 030
     Dates: start: 19960101, end: 20070801
  2. NEUROFEN [Concomitant]
  3. PARACETAMOL [Concomitant]
  4. PROVIGIL [Concomitant]
  5. DIAZEPAM [Concomitant]
  6. IMODIUM [Concomitant]
  7. DESMOPRESSIN [Concomitant]

REACTIONS (1)
  - COMPLEX REGIONAL PAIN SYNDROME [None]
